FAERS Safety Report 13347735 (Version 2)
Quarter: 2017Q2

REPORT INFORMATION
  Report Type: Spontaneous
  Country: US (occurrence: US)
  Receive Date: 20170317
  Receipt Date: 20170413
  Transmission Date: 20170830
  Serious: Yes (Other)
  Sender: FDA-Public Use
  Company Number: US-BIOMARINAP-US-2017-113274

PATIENT
  Age: 29 Year
  Sex: Male

DRUGS (1)
  1. VIMIZIM [Suspect]
     Active Substance: ELOSULFASE ALFA
     Indication: MUCOPOLYSACCHARIDOSIS IV
     Dosage: 80 MG, QW
     Route: 042
     Dates: start: 20140814

REACTIONS (7)
  - Cardiomegaly [Unknown]
  - Back pain [Unknown]
  - Attention deficit/hyperactivity disorder [Unknown]
  - Arthralgia [Unknown]
  - Aortic valve disease [Unknown]
  - Abasia [Unknown]
  - Fatigue [Unknown]

NARRATIVE: CASE EVENT DATE: 20170301
